FAERS Safety Report 11364149 (Version 3)
Quarter: 2015Q4

REPORT INFORMATION
  Report Type: Spontaneous
  Country: BR (occurrence: BR)
  Receive Date: 20150811
  Receipt Date: 20151110
  Transmission Date: 20160304
  Serious: Yes (Death, Hospitalization, Other)
  Sender: FDA-Public Use
  Company Number: BR-PFIZER INC-2015224993

PATIENT
  Age: 74 Year
  Sex: Male
  Weight: 62 kg

DRUGS (10)
  1. SUTENT [Suspect]
     Active Substance: SUNITINIB MALATE
     Indication: METASTATIC RENAL CELL CARCINOMA
     Dosage: 50 MG, CYCLIC (4 PER 2)
     Route: 048
     Dates: start: 201506, end: 2015
  2. VASTAREL [Concomitant]
     Active Substance: TRIMETAZIDINE DIHYDROCHLORIDE
     Dosage: UNK
  3. ALLOPURINOL. [Concomitant]
     Active Substance: ALLOPURINOL
     Dosage: UNK
  4. AAS [Concomitant]
     Active Substance: ASPIRIN
     Dosage: UNK
  5. ATENOLOL. [Concomitant]
     Active Substance: ATENOLOL
     Dosage: UNK
  6. GLIFAGE [Concomitant]
     Active Substance: METFORMIN HYDROCHLORIDE
     Dosage: UNK
  7. SUSTAGEN [Concomitant]
     Dosage: UNK
  8. SUTENT [Suspect]
     Active Substance: SUNITINIB MALATE
     Dosage: 12.5 MG, CYCLE 4 PER 2
     Route: 048
     Dates: start: 2015
  9. ADALAT [Concomitant]
     Active Substance: NIFEDIPINE
     Dosage: 30 MG, UNK
  10. LOSARTAN. [Concomitant]
     Active Substance: LOSARTAN
     Dosage: UNK

REACTIONS (14)
  - Haemoptysis [Recovered/Resolved]
  - Retching [Recovered/Resolved]
  - Metastatic renal cell carcinoma [Fatal]
  - Diarrhoea [Recovered/Resolved]
  - Haemorrhage [Recovered/Resolved]
  - Hypophagia [Recovered/Resolved]
  - Dehydration [Recovered/Resolved]
  - Anaemia [Unknown]
  - Decreased appetite [Recovered/Resolved]
  - Respiratory disorder [Unknown]
  - Feeling abnormal [Recovered/Resolved]
  - Skin discolouration [Recovered/Resolved]
  - Disease progression [Fatal]
  - Sneezing [Recovered/Resolved]

NARRATIVE: CASE EVENT DATE: 2015
